FAERS Safety Report 5760420-X (Version None)
Quarter: 2008Q2

REPORT INFORMATION
  Report Type: 
  Country: None (occurrence: None)
  Receive Date: 20080605
  Receipt Date: 20080526
  Transmission Date: 20081010
  Serious: Yes (Other)
  Sender: FDA-Public Use
  Company Number: AU-PFIZER INC-2008045164

PATIENT
  Age: 66 Year
  Sex: Male

DRUGS (7)
  1. MINIPRESS [Suspect]
  2. INSULIN [Concomitant]
     Indication: DIABETES MELLITUS
  3. CLOPIDOGREL [Concomitant]
  4. LASIX [Concomitant]
  5. PERINDOPRIL ERBUMINE [Concomitant]
  6. BISOPROLOL FUMARATE [Concomitant]
  7. ASPIRIN [Concomitant]

REACTIONS (1)
  - HYPOGLYCAEMIA [None]
